FAERS Safety Report 5356935-9 (Version None)
Quarter: 2007Q2

REPORT INFORMATION
  Report Type: 
  Country: None (occurrence: None)
  Receive Date: 20070614
  Receipt Date: 20060510
  Transmission Date: 20071010
  Serious: No
  Sender: FDA-Public Use
  Company Number: US-ASTRAZENECA-2006UW09273

PATIENT
  Age: 54 Year
  Sex: Male
  Weight: 97.5 kg

DRUGS (3)
  1. ATACAND HCT [Suspect]
     Indication: HYPERTENSION
     Dosage: 32-12.5
     Route: 048
  2. ATACAND HCT [Suspect]
     Route: 048
  3. ATENOLOL [Concomitant]

REACTIONS (3)
  - COUGH [None]
  - FATIGUE [None]
  - YAWNING [None]
